FAERS Safety Report 4378133-8 (Version None)
Quarter: 2004Q2

REPORT INFORMATION
  Report Type: 
  Country: None (occurrence: None)
  Receive Date: 20040609
  Receipt Date: 20040521
  Transmission Date: 20050107
  Serious: Yes (Life-Threatening)
  Sender: FDA-Public Use
  Company Number: EWC040539388

PATIENT
  Age: 4 Year
  Sex: Male

DRUGS (1)
  1. CEFACLOR [Suspect]
     Indication: OTITIS MEDIA
     Dosage: 700 UG DAY
     Dates: start: 20040501, end: 20040501

REACTIONS (4)
  - BRONCHOSPASM [None]
  - HYPERSENSITIVITY [None]
  - OEDEMA [None]
  - URTICARIA GENERALISED [None]
